FAERS Safety Report 9438913 (Version 4)
Quarter: 2018Q1

REPORT INFORMATION
  Report Type: Spontaneous
  Country: US (occurrence: US)
  Receive Date: 20130802
  Receipt Date: 20180109
  Transmission Date: 20180509
  Serious: Yes (Hospitalization, Other)
  Sender: FDA-Public Use
  Company Number: US-PFIZER INC-2013222472

PATIENT
  Age: 60 Year
  Sex: Female
  Weight: 82 kg

DRUGS (19)
  1. PEPCID [Concomitant]
     Active Substance: FAMOTIDINE
     Indication: GASTROOESOPHAGEAL REFLUX DISEASE
     Dosage: 20 MG, 1X/DAY
     Route: 048
     Dates: start: 2013
  2. FLINTSTONES MULTIPLE VITAMINS [Concomitant]
     Indication: SUPPLEMENTATION THERAPY
     Dosage: 1 DF, 1X/DAY
     Route: 048
     Dates: start: 2010
  3. REVATIO [Suspect]
     Active Substance: SILDENAFIL CITRATE
     Indication: PULMONARY ARTERIAL HYPERTENSION
     Dosage: 20 MG, 3X/DAY
     Dates: start: 201012
  4. MYCOPHENOLATE [Concomitant]
     Active Substance: MYCOPHENOLIC ACID
     Indication: SCLERODERMA
     Dosage: 360 MG, 1X/DAY
     Route: 048
     Dates: start: 201704
  5. IRON [Concomitant]
     Active Substance: IRON
     Indication: IRON DEFICIENCY
     Dosage: 67.5 MG, 1X/DAY; (ONE AND A HALF TABLET ONCE A DAY )
     Route: 048
     Dates: start: 2013
  6. VITAMIN D3 [Concomitant]
     Active Substance: CHOLECALCIFEROL
     Indication: VITAMIN D DECREASED
     Dosage: 5000 MG, 1X/DAY
     Route: 048
     Dates: start: 2012
  7. TRAMADOL. [Concomitant]
     Active Substance: TRAMADOL
     Indication: PAIN
  8. ZYRTEC [Concomitant]
     Active Substance: CETIRIZINE HYDROCHLORIDE
     Indication: DRUG HYPERSENSITIVITY
     Dosage: 10 MG, 1X/DAY
     Route: 048
     Dates: start: 2017
  9. MAGNESIUM [Concomitant]
     Active Substance: MAGNESIUM
     Indication: BLOOD MAGNESIUM DECREASED
     Dosage: 500 MG, 1X/DAY; (AT BEDTIME )
     Route: 048
     Dates: start: 2010
  10. GABAPENTIN. [Concomitant]
     Active Substance: GABAPENTIN
     Indication: PAIN
     Dosage: 300 MG, 3X/DAY
     Route: 048
     Dates: start: 2011
  11. NEXIUM [Concomitant]
     Active Substance: ESOMEPRAZOLE MAGNESIUM
     Indication: GASTROOESOPHAGEAL REFLUX DISEASE
     Dosage: 45 MG, 1X/DAY; (ONE TABLET AND A HALF ONCE A DAY)
     Route: 048
     Dates: start: 2010
  12. ACETAMINOPHEN. [Concomitant]
     Active Substance: ACETAMINOPHEN
     Indication: SLEEP DISORDER
     Dosage: 30 ML, 1X/DAY (AT BEDTIME )
     Route: 048
     Dates: start: 2010
  13. POTASSIUM GLUCONATE [Concomitant]
     Active Substance: POTASSIUM GLUCONATE
     Indication: BLOOD POTASSIUM DECREASED
     Dosage: 594 MG, 1X/DAY; (6 TABLETS ONCE A DAY )
     Route: 048
     Dates: start: 2010
  14. MYCOPHENOLATE [Concomitant]
     Active Substance: MYCOPHENOLIC ACID
     Indication: INFLAMMATION
  15. KRILL OIL [Concomitant]
     Active Substance: DIETARY SUPPLEMENT
     Indication: CARDIAC DISORDER
     Dosage: 500 MG, 1X/DAY
     Route: 048
     Dates: start: 2017
  16. METHIMAZOLE. [Concomitant]
     Active Substance: METHIMAZOLE
     Indication: THYROID DISORDER
     Dosage: CUT THE TABLET INTO QUARTERS OR EIGHTHS, SHE TOOK ONE WHOLE PILL PER WEEK, TOOK EVERY OTHER DAY
     Dates: start: 2011
  17. REVATIO [Suspect]
     Active Substance: SILDENAFIL CITRATE
     Indication: SYSTEMIC SCLERODERMA
  18. TRAMADOL. [Concomitant]
     Active Substance: TRAMADOL
     Indication: SYSTEMIC SCLERODERMA
     Dosage: 100 MG, 3X/DAY
     Route: 048
     Dates: start: 2011
  19. METOLAZONE. [Concomitant]
     Active Substance: METOLAZONE
     Indication: DIURETIC THERAPY
     Dosage: UNK
     Dates: start: 2010

REACTIONS (17)
  - Eye swelling [Recovered/Resolved]
  - Ulcer haemorrhage [Recovered/Resolved]
  - Interstitial lung disease [Not Recovered/Not Resolved]
  - Swelling [Not Recovered/Not Resolved]
  - Oesophageal spasm [Not Recovered/Not Resolved]
  - Ulcer [Not Recovered/Not Resolved]
  - Hiatus hernia [Not Recovered/Not Resolved]
  - Finger deformity [Not Recovered/Not Resolved]
  - Sjogren^s syndrome [Not Recovered/Not Resolved]
  - Thyroid disorder [Not Recovered/Not Resolved]
  - Cataract [Recovered/Resolved]
  - Corneal oedema [Recovered/Resolved]
  - Diarrhoea [Recovered/Resolved]
  - Blood sodium increased [Unknown]
  - Vitamin D decreased [Not Recovered/Not Resolved]
  - Blood iron decreased [Recovered/Resolved]
  - Wrist deformity [Not Recovered/Not Resolved]

NARRATIVE: CASE EVENT DATE: 2010
